FAERS Safety Report 10476437 (Version 1)
Quarter: 2014Q3

REPORT INFORMATION
  Report Type: Report from Study
  Country: BR (occurrence: BR)
  Receive Date: 20140925
  Receipt Date: 20140925
  Transmission Date: 20150326
  Serious: Yes (Hospitalization, Other)
  Sender: FDA-Public Use
  Company Number: BR-ABBVIE-14P-020-1287519-00

PATIENT
  Age: 55 Year
  Sex: Female
  Weight: 70 kg

DRUGS (9)
  1. PURAN [Concomitant]
     Active Substance: LEVOTHYROXINE SODIUM
     Indication: HYPOTHYROIDISM
     Route: 048
     Dates: start: 1984
  2. DIOVAN AMLO [Concomitant]
     Active Substance: AMLODIPINE\VALSARTAN
     Indication: BLOOD PRESSURE ABNORMAL
     Route: 048
  3. MAREVAN [Suspect]
     Active Substance: WARFARIN SODIUM
     Indication: THROMBOSIS PROPHYLAXIS
     Route: 048
     Dates: start: 2010
  4. MAREVAN [Suspect]
     Active Substance: WARFARIN SODIUM
     Indication: HAEMORRHAGE
  5. MAREVAN [Suspect]
     Active Substance: WARFARIN SODIUM
     Indication: PROPHYLAXIS
  6. HUMIRA [Suspect]
     Active Substance: ADALIMUMAB
     Indication: RHEUMATOID ARTHRITIS
     Route: 058
     Dates: start: 20110701, end: 20120301
  7. RIVOTRIL [Concomitant]
     Active Substance: CLONAZEPAM
     Indication: INSOMNIA
     Route: 048
  8. NEBLOCK [Concomitant]
     Indication: MITRAL VALVE DISEASE
     Route: 048
  9. DIOVAN AMLO [Concomitant]
     Active Substance: AMLODIPINE\VALSARTAN
     Indication: MITRAL VALVE DISEASE

REACTIONS (7)
  - Haemorrhagic disorder [Recovered/Resolved]
  - Anaemia [Recovered/Resolved]
  - Blood creatinine increased [Recovering/Resolving]
  - Limb injury [Unknown]
  - Exostosis [Recovered/Resolved]
  - Overweight [Recovered/Resolved]
  - Pain [Unknown]

NARRATIVE: CASE EVENT DATE: 201307
